FAERS Safety Report 6823564-7 (Version None)
Quarter: 2010Q3

REPORT INFORMATION
  Report Type: 
  Country: None (occurrence: None)
  Receive Date: 20100708
  Receipt Date: 20060719
  Transmission Date: 20110219
  Serious: No
  Sender: FDA-Public Use
  Company Number: US-PFIZER INC-2006091458

PATIENT
  Sex: Male
  Weight: 80.74 kg

DRUGS (7)
  1. CHANTIX [Suspect]
     Indication: SMOKING CESSATION THERAPY
     Route: 065
     Dates: start: 20060616
  2. CAMPRAL [Concomitant]
     Route: 065
  3. ENULOSE [Concomitant]
     Route: 065
  4. FOLIC ACID [Concomitant]
     Route: 065
  5. VITAMIN C [Concomitant]
     Route: 065
  6. VITAMIN B-12 [Concomitant]
     Route: 065
  7. FUROSEMIDE [Concomitant]
     Route: 065

REACTIONS (2)
  - FATIGUE [None]
  - YAWNING [None]
